FAERS Safety Report 15178801 (Version 2)
Quarter: 2019Q2

REPORT INFORMATION
  Report Type: Spontaneous
  Country: AT (occurrence: AT)
  Receive Date: 20180722
  Receipt Date: 20190624
  Transmission Date: 20190711
  Serious: Yes (Hospitalization)
  Sender: FDA-Public Use
  Company Number: PHHY2018AT050591

PATIENT
  Age: 42 Year
  Sex: Female
  Weight: 49 kg

DRUGS (21)
  1. XANOR [Concomitant]
     Active Substance: ALPRAZOLAM
     Indication: PRODUCT USED FOR UNKNOWN INDICATION
     Dosage: UNK
     Route: 065
     Dates: start: 20170926
  2. FORTECORTIN [Concomitant]
     Active Substance: DEXAMETHASONE
     Dosage: UNK
     Route: 065
     Dates: start: 20170929
  3. DOCETAXEL. [Suspect]
     Active Substance: DOCETAXEL
     Indication: BREAST CANCER
     Dosage: 75 MG/M2, Q3W
     Route: 042
     Dates: start: 20170926
  4. ZOFRAN [Concomitant]
     Active Substance: ONDANSETRON HYDROCHLORIDE
     Indication: PRODUCT USED FOR UNKNOWN INDICATION
     Dosage: UNK
     Route: 065
     Dates: start: 20170926, end: 20180109
  5. ZOFRAN [Concomitant]
     Active Substance: ONDANSETRON HYDROCHLORIDE
     Dosage: UNK
     Route: 065
  6. DUROTIV [Concomitant]
     Active Substance: ESOMEPRAZOLE
     Indication: PRODUCT USED FOR UNKNOWN INDICATION
     Dosage: UNK
     Route: 065
  7. ENTEROBENE [Concomitant]
     Indication: DIARRHOEA HAEMORRHAGIC
     Dosage: UNK (ONGOING- NOT CHECKED)
     Route: 065
  8. TRASTUZUMAB. [Suspect]
     Active Substance: TRASTUZUMAB
     Indication: BREAST CANCER
     Dosage: 8 MG/KG, Q3W
     Route: 042
     Dates: start: 20170926
  9. NORMOLYT [Concomitant]
     Indication: DIARRHOEA HAEMORRHAGIC
     Dosage: UNK
     Route: 065
     Dates: start: 20180115
  10. PERTUZUMAB. [Suspect]
     Active Substance: PERTUZUMAB
     Indication: BREAST CANCER
     Dosage: 840 MG, Q3W
     Route: 042
     Dates: start: 20170926
  11. DUROTIV [Concomitant]
     Active Substance: ESOMEPRAZOLE
     Dosage: UNK
     Route: 065
     Dates: start: 20170925, end: 20180415
  12. LONQUEX [Concomitant]
     Active Substance: LIPEGFILGRASTIM
     Indication: PRODUCT USED FOR UNKNOWN INDICATION
     Dosage: UNK
     Route: 065
     Dates: start: 20170926
  13. GLANDOMED [Concomitant]
     Indication: PRODUCT USED FOR UNKNOWN INDICATION
     Dosage: UNK
     Route: 065
     Dates: start: 20170926
  14. NOVALGIN [Concomitant]
     Indication: PRODUCT USED FOR UNKNOWN INDICATION
     Route: 065
  15. SPIRULINA [Concomitant]
     Active Substance: SPIRULINA
     Indication: PRODUCT USED FOR UNKNOWN INDICATION
     Route: 065
  16. FORTECORTIN [Concomitant]
     Active Substance: DEXAMETHASONE
     Indication: PRODUCT USED FOR UNKNOWN INDICATION
     Dosage: UNK
     Route: 065
     Dates: start: 20170926, end: 20180109
  17. MYCOSTATIN [Concomitant]
     Active Substance: NYSTATIN
     Indication: PRODUCT USED FOR UNKNOWN INDICATION
     Dosage: UNK
     Route: 065
     Dates: start: 20180123
  18. DIBONDRIN [Concomitant]
     Active Substance: DIPHENHYDRAMINE HYDROCHLORIDE
     Indication: PRODUCT USED FOR UNKNOWN INDICATION
     Dosage: UNK
     Route: 065
     Dates: start: 20170926
  19. EMEND [Concomitant]
     Active Substance: APREPITANT
     Indication: PRODUCT USED FOR UNKNOWN INDICATION
     Dosage: UNK
     Route: 065
     Dates: start: 20170126, end: 20180109
  20. EMEND [Concomitant]
     Active Substance: APREPITANT
     Dosage: UNK
     Route: 065
     Dates: start: 20171017, end: 20180111
  21. LOVENOX [Concomitant]
     Active Substance: ENOXAPARIN SODIUM
     Indication: PRODUCT USED FOR UNKNOWN INDICATION
     Dosage: UNK
     Route: 065
     Dates: start: 20171125

REACTIONS (2)
  - Infection [Recovered/Resolved]
  - Febrile infection [Recovered/Resolved]

NARRATIVE: CASE EVENT DATE: 20180121
